FAERS Safety Report 11636276 (Version 1)
Quarter: 2015Q4

REPORT INFORMATION
  Report Type: Spontaneous
  Country: US (occurrence: US)
  Receive Date: 20151016
  Receipt Date: 20151016
  Transmission Date: 20160304
  Serious: No
  Sender: FDA-Public Use
  Company Number: US-ASTRAZENECA-2015SE96030

PATIENT
  Age: 1543 Week
  Sex: Male
  Weight: 104.3 kg

DRUGS (4)
  1. BYDUREON [Suspect]
     Active Substance: EXENATIDE
     Indication: TYPE 2 DIABETES MELLITUS
     Route: 058
  2. METFORMIN [Concomitant]
     Active Substance: METFORMIN HYDROCHLORIDE
     Indication: DIABETES MELLITUS
  3. INVOKANA [Concomitant]
     Active Substance: CANAGLIFLOZIN
     Indication: DIABETES MELLITUS
  4. ANAPRIL [Concomitant]
     Active Substance: ENALAPRIL MALEATE
     Indication: RENAL DISORDER

REACTIONS (5)
  - Injection site extravasation [Recovered/Resolved]
  - Injection site mass [Recovered/Resolved with Sequelae]
  - Underdose [Unknown]
  - Injection site pain [Recovered/Resolved]
  - Product quality issue [Unknown]

NARRATIVE: CASE EVENT DATE: 20151005
